FAERS Safety Report 23964028 (Version 1)
Quarter: 2024Q2

REPORT INFORMATION
  Report Type: Spontaneous
  Country: ZA (occurrence: ZA)
  Receive Date: 20240611
  Receipt Date: 20240611
  Transmission Date: 20240716
  Serious: Yes (Hospitalization, Other)
  Sender: FDA-Public Use
  Company Number: ZA-BAYER-2024A083717

PATIENT
  Age: 32 Year
  Sex: Female

DRUGS (1)
  1. XARELTO [Suspect]
     Active Substance: RIVAROXABAN
     Indication: Product used for unknown indication
     Dosage: UNK
     Route: 048
     Dates: start: 20131014

REACTIONS (7)
  - Rectal haemorrhage [Recovered/Resolved]
  - Near death experience [Unknown]
  - Loss of consciousness [Unknown]
  - Post-traumatic stress disorder [Unknown]
  - Gastrointestinal sounds abnormal [Unknown]
  - Nightmare [Unknown]
  - Product dispensing error [Unknown]

NARRATIVE: CASE EVENT DATE: 20131014
